FAERS Safety Report 6030353-2 (Version None)
Quarter: 2009Q1

REPORT INFORMATION
  Report Type: 
  Country: None (occurrence: None)
  Receive Date: 20090107
  Receipt Date: 20080728
  Transmission Date: 20090719
  Serious: No
  Sender: FDA-Public Use
  Company Number: US-BAYER-200813205BCC

PATIENT
  Age: 19 Year
  Sex: Female
  Weight: 48 kg

DRUGS (4)
  1. ALEVE [Suspect]
     Indication: ARTHRALGIA
     Dosage: TOTAL DAILY DOSE: 660 MG  UNIT DOSE: 220 MG
  2. ZOLOFT [Concomitant]
  3. VITAMIN [Concomitant]
  4. ALDACTONE [Concomitant]

REACTIONS (1)
  - NAUSEA [None]
